FAERS Safety Report 13686401 (Version 2)
Quarter: 2017Q4

REPORT INFORMATION
  Report Type: Spontaneous
  Country: US (occurrence: US)
  Receive Date: 20170623
  Receipt Date: 20171023
  Transmission Date: 20180320
  Serious: Yes (Hospitalization, Other)
  Sender: FDA-Public Use
  Company Number: US-SA-2017SA101195

PATIENT
  Age: 72 Year
  Sex: Male

DRUGS (11)
  1. PRALUENT [Suspect]
     Active Substance: ALIROCUMAB
     Indication: HYPERLIPIDAEMIA
     Route: 058
     Dates: start: 20160531
  2. ASPIRIN. [Concomitant]
     Active Substance: ASPIRIN
  3. MIRALAX [Concomitant]
     Active Substance: POLYETHYLENE GLYCOL 3350
  4. ALIROCUMAB PREFILLED PEN [Suspect]
     Active Substance: ALIROCUMAB
     Indication: HYPERLIPIDAEMIA
     Dates: start: 20160531
  5. LISINOPRIL. [Concomitant]
     Active Substance: LISINOPRIL
  6. WELCHOL [Concomitant]
     Active Substance: COLESEVELAM HYDROCHLORIDE
  7. COREG [Concomitant]
     Active Substance: CARVEDILOL
  8. ALIROCUMAB PREFILLED PEN [Suspect]
     Active Substance: ALIROCUMAB
     Indication: HYPERLIPIDAEMIA
     Dates: start: 20160531
  9. NIASPAN [Concomitant]
     Active Substance: NIACIN
  10. PRALUENT [Suspect]
     Active Substance: ALIROCUMAB
     Indication: HYPERLIPIDAEMIA
     Route: 058
     Dates: start: 20160531
  11. PSYLLIUM [Concomitant]
     Active Substance: PLANTAGO SEED

REACTIONS (2)
  - Gallbladder disorder [Unknown]
  - Myocardial infarction [Unknown]
